FAERS Safety Report 18417992 (Version 2)
Quarter: 2020Q4

REPORT INFORMATION
  Report Type: Report from Study
  Country: US (occurrence: US)
  Receive Date: 20201022
  Receipt Date: 20201030
  Transmission Date: 20210114
  Serious: Yes (Other)
  Sender: FDA-Public Use
  Company Number: US-BIOGEN-2020BI00917808

PATIENT
  Age: 55 Year
  Sex: Female

DRUGS (5)
  1. VUMERITY [Suspect]
     Active Substance: DIROXIMEL FUMARATE
     Route: 048
     Dates: start: 20200819
  2. VUMERITY [Suspect]
     Active Substance: DIROXIMEL FUMARATE
     Route: 048
     Dates: start: 20200826, end: 20201014
  3. VUMERITY [Suspect]
     Active Substance: DIROXIMEL FUMARATE
     Indication: MULTIPLE SCLEROSIS
     Route: 048
     Dates: start: 20200730
  4. VUMERITY [Suspect]
     Active Substance: DIROXIMEL FUMARATE
     Route: 048
     Dates: start: 20200819, end: 20200825
  5. VUMERITY [Suspect]
     Active Substance: DIROXIMEL FUMARATE
     Route: 048

REACTIONS (18)
  - Fall [Recovered/Resolved]
  - Eye contusion [Unknown]
  - Skin laceration [Recovered/Resolved]
  - Diarrhoea [Not Recovered/Not Resolved]
  - Head injury [Unknown]
  - Headache [Unknown]
  - Forearm fracture [Not Recovered/Not Resolved]
  - Drug ineffective [Unknown]
  - Musculoskeletal stiffness [Unknown]
  - Flushing [Recovered/Resolved]
  - Gastric disorder [Recovered/Resolved]
  - Limb injury [Unknown]
  - Vomiting [Unknown]
  - Dizziness [Unknown]
  - Abdominal pain [Not Recovered/Not Resolved]
  - Skin mass [Unknown]
  - Balance disorder [Unknown]
  - Impaired gastric emptying [Recovered/Resolved]

NARRATIVE: CASE EVENT DATE: 202009
